FAERS Safety Report 24458408 (Version 2)
Quarter: 2024Q4

REPORT INFORMATION
  Report Type: Report from Study
  Country: US (occurrence: US)
  Receive Date: 20241018
  Receipt Date: 20241022
  Transmission Date: 20250114
  Serious: Yes (Other)
  Sender: ABBVIE
  Company Number: US-ABBVIE-5964875

PATIENT
  Sex: Female

DRUGS (1)
  1. RINVOQ [Suspect]
     Active Substance: UPADACITINIB
     Indication: Rheumatoid arthritis
     Route: 048
     Dates: start: 2023

REACTIONS (7)
  - Deafness [Unknown]
  - Ear swelling [Unknown]
  - Rheumatoid arthritis [Unknown]
  - Ageusia [Unknown]
  - Back pain [Unknown]
  - Abdominal pain upper [Unknown]
  - Parosmia [Unknown]

NARRATIVE: CASE EVENT DATE: 20240101
